FAERS Safety Report 7682211-5 (Version None)
Quarter: 2011Q3

REPORT INFORMATION
  Report Type: 
  Country: None (occurrence: None)
  Receive Date: 20110815
  Receipt Date: 20110809
  Transmission Date: 20111222
  Serious: No
  Sender: FDA-Public Use
  Company Number: US-PFIZER INC-2011183669

PATIENT
  Sex: Male
  Weight: 49.9 kg

DRUGS (1)
  1. GENOTROPIN [Suspect]
     Indication: GROWTH HORMONE DEFICIENCY
     Dosage: 1.8 MG, (INJECT 1.8 MG SUBCUTANEOUSLY EVERY NIGHT AT BEDTIME)
     Route: 058
     Dates: start: 20070601

REACTIONS (1)
  - INJECTION SITE REACTION [None]
